FAERS Safety Report 17371182 (Version 1)
Quarter: 2020Q1

REPORT INFORMATION
  Report Type: Spontaneous
  Country: GB (occurrence: GB)
  Receive Date: 20200205
  Receipt Date: 20200205
  Transmission Date: 20200409
  Serious: Yes (Hospitalization, Other)
  Sender: FDA-Public Use
  Company Number: GB-ROCHE-2536582

PATIENT
  Sex: Male

DRUGS (1)
  1. MABTHERA [Suspect]
     Active Substance: RITUXIMAB
     Indication: PRODUCT USED FOR UNKNOWN INDICATION
     Dosage: FIRST DOSE ON 17/DEC/ AND NEXT DOSE RECEIVED ON 03/JAN/.
     Route: 042

REACTIONS (5)
  - Tachycardia [Unknown]
  - Myasthenia gravis [Unknown]
  - Burning sensation [Unknown]
  - Fatigue [Unknown]
  - Malaise [Unknown]
